FAERS Safety Report 6570206-4 (Version None)
Quarter: 2010Q1

REPORT INFORMATION
  Report Type: 
  Country: None (occurrence: None)
  Receive Date: 20100204
  Receipt Date: 20100202
  Transmission Date: 20100710
  Serious: Yes (Death, Hospitalization)
  Sender: FDA-Public Use
  Company Number: DE-ROCHE-663982

PATIENT
  Sex: Male
  Weight: 53 kg

DRUGS (2)
  1. PEG-INTERFERON A-2A (RO 25-8310) [Suspect]
     Route: 058
     Dates: start: 20090731, end: 20091106
  2. RIBAVIRIN [Suspect]
     Route: 048
     Dates: start: 20090731, end: 20091106

REACTIONS (3)
  - ABDOMINAL PAIN [None]
  - GENERAL PHYSICAL HEALTH DETERIORATION [None]
  - LYMPHOMA [None]
